FAERS Safety Report 4641660-X (Version None)
Quarter: 2005Q2

REPORT INFORMATION
  Report Type: 
  Country: None (occurrence: None)
  Receive Date: 20050420
  Receipt Date: 20050409
  Transmission Date: 20051028
  Serious: Yes (Hospitalization)
  Sender: FDA-Public Use
  Company Number: 05P-056-0295558-00

PATIENT
  Age: 34 Year
  Sex: Female

DRUGS (9)
  1. NORVIR [Suspect]
     Indication: HIV INFECTION
     Dosage: 2 UNITS DAILY, PER ORAL
     Route: 048
     Dates: start: 20020101, end: 20040524
  2. INDINAVIR [Suspect]
     Indication: HIV INFECTION
     Dosage: 800 MG DAILY, PER ORAL
     Route: 048
     Dates: start: 20020101, end: 20040524
  3. LAMIVUDINE + ZIDOVUDINE [Suspect]
     Indication: HIV INFECTION
     Dosage: 2 UNITS DAILY PER ORAL; 2 TABLET, 2 IN 1 D
     Route: 048
     Dates: start: 20020101, end: 20040524
  4. ISONIAIDE [Concomitant]
  5. RIFANPICINE [Concomitant]
  6. ETHAMBUTOL HCL [Concomitant]
  7. RIFABUTINE [Concomitant]
  8. LAMIVUDINE + ZIDOVUDINE [Concomitant]
  9. EFAVIRENZ [Concomitant]

REACTIONS (7)
  - DRUG EXPOSURE DURING PREGNANCY [None]
  - HEPATITIS [None]
  - HEPATOCELLULAR DAMAGE [None]
  - HEPATOMEGALY [None]
  - INCORRECT DOSE ADMINISTERED [None]
  - PROTEIN TOTAL INCREASED [None]
  - PULMONARY TUBERCULOSIS [None]
